FAERS Safety Report 5060543-7 (Version None)
Quarter: 2006Q3

REPORT INFORMATION
  Report Type: 
  Country: None (occurrence: None)
  Receive Date: 20060719
  Receipt Date: 20060719
  Transmission Date: 20061208
  Serious: Yes (Hospitalization, Disabling)
  Sender: FDA-Public Use
  Company Number: None

PATIENT
  Age: 53 Year
  Sex: Female
  Weight: 52.1637 kg

DRUGS (2)
  1. ADVIL [Suspect]
     Indication: INFLUENZA LIKE ILLNESS
     Dosage: 200MG  TWICE DAILY  ORALLY
     Route: 048
     Dates: start: 20031203
  2. THERA FLU [Concomitant]

REACTIONS (17)
  - ADHESION [None]
  - BLISTER [None]
  - DEHYDRATION [None]
  - ERYTHEMA [None]
  - EYE DISORDER [None]
  - EYE OPERATION [None]
  - GENERALISED OEDEMA [None]
  - GROWTH OF EYELASHES [None]
  - LACRIMATION DECREASED [None]
  - NASAL MUCOSAL DISORDER [None]
  - ONYCHOMADESIS [None]
  - ORAL MUCOSAL DISORDER [None]
  - PAIN [None]
  - PHOTOPHOBIA [None]
  - PYREXIA [None]
  - SCAR [None]
  - VISUAL DISTURBANCE [None]
